FAERS Safety Report 4423496-8 (Version None)
Quarter: 2004Q3

REPORT INFORMATION
  Report Type: 
  Country: None (occurrence: None)
  Receive Date: 20040713
  Receipt Date: 20040409
  Transmission Date: 20050211
  Serious: No
  Sender: FDA-Public Use
  Company Number: PHEH2004US04078

PATIENT
  Age: 61 Year
  Sex: Female

DRUGS (1)
  1. ELIDEL [Suspect]
     Indication: ECZEMA
     Dosage: UNK, BID; TOPICAL
     Route: 061
     Dates: start: 20040402

REACTIONS (1)
  - EYE IRRITATION [None]
